FAERS Safety Report 17972125 (Version 2)
Quarter: 2020Q3

REPORT INFORMATION
  Report Type: Spontaneous
  Country: JP (occurrence: JP)
  Receive Date: 20200701
  Receipt Date: 20200910
  Transmission Date: 20201103
  Serious: Yes (Other)
  Sender: FDA-Public Use
  Company Number: JP-ROCHE-2633627

PATIENT
  Age: 70 Year
  Sex: Female

DRUGS (22)
  1. EDIROL [Concomitant]
     Active Substance: ELDECALCITOL
     Route: 048
     Dates: start: 20170428, end: 20180914
  2. MUCOSTA [Concomitant]
     Active Substance: REBAMIPIDE
     Indication: PROPHYLAXIS
     Dosage: 1)400 MG (200 MG,1 IN 12 HR)?2)200 MG (100 MG,1 IN 12 HR)
     Route: 048
     Dates: start: 20170327
  3. GRANISETRON [Concomitant]
     Active Substance: GRANISETRON
     Route: 042
     Dates: start: 20171024, end: 20171024
  4. DOXIL [Concomitant]
     Active Substance: DOXORUBICIN HYDROCHLORIDE
     Route: 042
     Dates: start: 20171024, end: 20171024
  5. CELECOXIB. [Concomitant]
     Active Substance: CELECOXIB
     Route: 048
     Dates: start: 20170327, end: 20180510
  6. CELECOXIB. [Concomitant]
     Active Substance: CELECOXIB
     Route: 048
     Dates: start: 20180510
  7. GRANISETRON [Concomitant]
     Active Substance: GRANISETRON
     Route: 042
     Dates: start: 20171121, end: 20171121
  8. DOXIL [Concomitant]
     Active Substance: DOXORUBICIN HYDROCHLORIDE
     Route: 042
     Dates: start: 20170926, end: 20180329
  9. DOXIL [Concomitant]
     Active Substance: DOXORUBICIN HYDROCHLORIDE
     Route: 042
     Dates: start: 20171219, end: 20171219
  10. BONVIVA [Suspect]
     Active Substance: IBANDRONATE SODIUM
     Route: 048
     Dates: start: 20170728, end: 20180914
  11. MOHRUS [Concomitant]
     Active Substance: KETOPROFEN
     Dates: start: 20170327, end: 20180914
  12. GRANISETRON [Concomitant]
     Active Substance: GRANISETRON
     Route: 042
     Dates: start: 20170926, end: 20170926
  13. GRANISETRON [Concomitant]
     Active Substance: GRANISETRON
     Route: 042
     Dates: start: 20180329, end: 20180329
  14. DOXIL [Concomitant]
     Active Substance: DOXORUBICIN HYDROCHLORIDE
     Route: 042
     Dates: start: 20180207, end: 20180207
  15. LYRICA [Concomitant]
     Active Substance: PREGABALIN
     Dosage: 150 MG (75 MG,1 IN 12 HR)
     Route: 048
     Dates: start: 20170901, end: 20180914
  16. GRANISETRON [Concomitant]
     Active Substance: GRANISETRON
     Route: 042
     Dates: start: 20180207, end: 20180207
  17. BONVIVA [Suspect]
     Active Substance: IBANDRONATE SODIUM
     Indication: OSTEOPOROSIS POSTMENOPAUSAL
     Route: 048
     Dates: start: 20170327, end: 20170428
  18. VITAMINS NOS [Concomitant]
     Active Substance: VITAMINS
     Dosage: 45 MCG (15 MCG,1 IN 8 HR)?15 MCG (5 MCG,1 IN 8 HR)
     Route: 048
     Dates: start: 20170327, end: 20180914
  19. MUCOSTA [Concomitant]
     Active Substance: REBAMIPIDE
     Route: 048
     Dates: start: 20180510
  20. DOXIL [Concomitant]
     Active Substance: DOXORUBICIN HYDROCHLORIDE
     Route: 042
     Dates: start: 20171121, end: 20171121
  21. DOXIL [Concomitant]
     Active Substance: DOXORUBICIN HYDROCHLORIDE
     Route: 042
     Dates: start: 20180329, end: 20180329
  22. GRANISETRON [Concomitant]
     Active Substance: GRANISETRON
     Route: 042
     Dates: start: 20171219, end: 20171219

REACTIONS (2)
  - Ovarian cancer [Unknown]
  - General physical health deterioration [Unknown]
